FAERS Safety Report 10672032 (Version 1)
Quarter: 2014Q4

REPORT INFORMATION
  Report Type: Spontaneous
  Country: DE (occurrence: DE)
  Receive Date: 20141223
  Receipt Date: 20141223
  Transmission Date: 20150529
  Serious: Yes (Other)
  Sender: FDA-Public Use
  Company Number: DE-ACTELION-A-CH2014-109826

PATIENT
  Age: 5 Year
  Sex: Female
  Weight: 12.8 kg

DRUGS (11)
  1. LEVETIRACETAM. [Concomitant]
     Active Substance: LEVETIRACETAM
     Dosage: 7 ML, BID
  2. NEXIUM [Concomitant]
     Active Substance: ESOMEPRAZOLE MAGNESIUM
     Dosage: UNK, QD
     Route: 048
  3. ESPUMISAN [Concomitant]
     Dosage: 1.1 ML, QD
  4. TOPIRAMAT [Concomitant]
     Active Substance: TOPIRAMATE
     Dosage: 75 MG, BID
  5. DIAZEPAM. [Concomitant]
     Active Substance: DIAZEPAM
     Dosage: 1 ML, BID
  6. MOVICOL [Concomitant]
     Active Substance: POLYETHYLENE GLYCOL 3350\POTASSIUM CHLORIDE\SODIUM BICARBONATE\SODIUM CHLORIDE
     Dosage: UNK, BID
  7. NEUROCIL [Concomitant]
     Active Substance: LEVOMEPROMAZINE HYDROCHLORIDE\LEVOMEPROMAZINE MALEATE
     Dosage: 8 DROP, BID
     Route: 048
  8. BRONCHICUM [Concomitant]
     Dosage: 5 ML, QD
  9. PARACETAMOL [Concomitant]
     Active Substance: ACETAMINOPHEN
  10. ZAVESCA [Suspect]
     Active Substance: MIGLUSTAT
     Indication: LIPIDOSIS
     Dosage: 100 MG, BID
     Route: 048
  11. ORAMORPH SR SUSTAINED RELEASE [Concomitant]
     Active Substance: MORPHINE SULFATE
     Dosage: 4 MG, TID

REACTIONS (1)
  - Epilepsy [Unknown]
